FAERS Safety Report 4499763-9 (Version None)
Quarter: 2004Q4

REPORT INFORMATION
  Report Type: 
  Country: None (occurrence: None)
  Receive Date: 20041112
  Receipt Date: 20041104
  Transmission Date: 20050328
  Serious: Yes (Death)
  Sender: FDA-Public Use
  Company Number: US-JNJFOC-20040904116

PATIENT
  Sex: Male

DRUGS (5)
  1. DURAGESIC [Suspect]
     Route: 062
     Dates: start: 20040701, end: 20040814
  2. TYLENOL [Concomitant]
  3. WELLBUTRIN [Concomitant]
  4. EFFEXOR [Concomitant]
  5. XANAX [Concomitant]

REACTIONS (4)
  - HAEMORRHAGE [None]
  - INTENTIONAL MISUSE [None]
  - LIGAMENT DISORDER [None]
  - MUSCLE TIGHTNESS [None]
